FAERS Safety Report 4981711-6 (Version None)
Quarter: 2006Q2

REPORT INFORMATION
  Report Type: 
  Country: None (occurrence: None)
  Receive Date: 20060420
  Receipt Date: 20060420
  Transmission Date: 20061013
  Serious: Yes (Life-Threatening, Disabling)
  Sender: FDA-Public Use
  Company Number: None

PATIENT
  Sex: Male
  Weight: 118.8424 kg

DRUGS (2)
  1. SEROQUEL [Suspect]
     Indication: POST-TRAUMATIC STRESS DISORDER
     Dosage: TWICE A DAY 100 MG
     Dates: start: 20050609
  2. PAXIL [Suspect]
     Indication: PANIC ATTACK
     Dosage: TWICE A DAY 40 MG
     Dates: start: 20050405

REACTIONS (9)
  - ASTHENIA [None]
  - BLINDNESS UNILATERAL [None]
  - BLOOD GLUCOSE INCREASED [None]
  - DRY EYE [None]
  - HOSTILITY [None]
  - MUSCLE RIGIDITY [None]
  - PALPITATIONS [None]
  - TINNITUS [None]
  - URINARY TRACT INFECTION [None]
